FAERS Safety Report 21916578 (Version 1)
Quarter: 2023Q1

REPORT INFORMATION
  Report Type: Spontaneous
  Country: US (occurrence: None)
  Receive Date: 20230125
  Receipt Date: 20230125
  Transmission Date: 20230418
  Serious: Yes (Death)
  Sender: FDA-Public Use
  Company Number: None

PATIENT
  Age: 62 Year
  Sex: Male

DRUGS (5)
  1. TACROLIMUS [Suspect]
     Active Substance: TACROLIMUS
     Indication: Renal transplant
     Dosage: 1MG 1QAM 2QPM ORAL?
     Route: 048
     Dates: start: 20200213, end: 202301
  2. RAYALDEE [Suspect]
     Active Substance: CALCIFEDIOL
     Indication: Renal transplant
     Dosage: 30MCG 2 CS DAILY ORAL
     Route: 048
     Dates: start: 20200213, end: 202301
  3. VELPHORO [Concomitant]
     Active Substance: SUCROFERRIC OXYHYDROXIDE
  4. SODIUM BICARBONATE [Concomitant]
     Active Substance: SODIUM BICARBONATE
  5. VITAMIN D3 [Concomitant]
     Active Substance: CHOLECALCIFEROL

REACTIONS (1)
  - Death [None]

NARRATIVE: CASE EVENT DATE: 20230101
